FAERS Safety Report 19966546 (Version 1)
Quarter: 2021Q4

REPORT INFORMATION
  Report Type: Spontaneous
  Country: US (occurrence: US)
  Receive Date: 20211019
  Receipt Date: 20211019
  Transmission Date: 20220304
  Serious: Yes (Other)
  Sender: FDA-Public Use
  Company Number: US-DRREDDYS-SPO/USA/21/0142696

PATIENT
  Age: 17 Year
  Sex: Female

DRUGS (1)
  1. ZENATANE [Suspect]
     Active Substance: ISOTRETINOIN
     Indication: Product used for unknown indication
     Dosage: RMA ISSUE DATE: 13/JULY/2021 12:00:00 AM, 12/AUGUS/2021 12:00:00 AM, 14/SEPTEMBER/2021 12:00:00 AM.

REACTIONS (7)
  - Depression [Unknown]
  - Mood altered [Unknown]
  - Headache [Unknown]
  - Dry skin [Unknown]
  - Arthralgia [Unknown]
  - Myalgia [Unknown]
  - Epistaxis [Unknown]
